FAERS Safety Report 5085398-6 (Version None)
Quarter: 2006Q3

REPORT INFORMATION
  Report Type: 
  Country: None (occurrence: None)
  Receive Date: 20060822
  Receipt Date: 20060126
  Transmission Date: 20061208
  Serious: Yes (Hospitalization)
  Sender: FDA-Public Use
  Company Number: DE-BRISTOL-MYERS SQUIBB COMPANY-13476098

PATIENT
  Age: 57 Year
  Sex: Female
  Weight: 74 kg

DRUGS (5)
  1. CYCLOPHOSPHAMIDE [Suspect]
     Indication: BREAST CANCER
     Route: 042
     Dates: start: 20051222, end: 20051222
  2. PACLITAXEL [Suspect]
     Indication: BREAST CANCER
     Route: 042
     Dates: start: 20051208, end: 20051208
  3. EPIRUBICIN [Suspect]
     Indication: BREAST CANCER
     Route: 042
     Dates: start: 20051019, end: 20051019
  4. FERRO SANOL [Concomitant]
     Route: 048
     Dates: start: 20050921
  5. PANTOZOL [Concomitant]
     Route: 048
     Dates: start: 20051222

REACTIONS (3)
  - ESCHERICHIA URINARY TRACT INFECTION [None]
  - THROMBOPHLEBITIS [None]
  - URINARY TRACT INFECTION [None]
